FAERS Safety Report 17496234 (Version 1)
Quarter: 2020Q1

REPORT INFORMATION
  Report Type: Report from Study
  Country: None (occurrence: US)
  Receive Date: 20200303
  Receipt Date: 20200303
  Transmission Date: 20200409
  Serious: Yes (Hospitalization)
  Sender: FDA-Public Use
  Company Number: US-ABBVIE-20P-163-3302524-00

PATIENT
  Sex: Male

DRUGS (2)
  1. SYNAGIS [Suspect]
     Active Substance: PALIVIZUMAB
     Indication: RESPIRATORY SYNCYTIAL VIRUS INFECTION
     Route: 030
     Dates: start: 201912
  2. SYNAGIS [Suspect]
     Active Substance: PALIVIZUMAB
     Dosage: (STRENGTH:50MG/0.5ML)
     Route: 030

REACTIONS (1)
  - Influenza [Unknown]
